FAERS Safety Report 10473963 (Version 2)
Quarter: 2014Q3

REPORT INFORMATION
  Report Type: Report from Study
  Country: IT (occurrence: IT)
  Receive Date: 20140924
  Receipt Date: 20140930
  Transmission Date: 20150326
  Serious: Yes (Hospitalization)
  Sender: FDA-Public Use
  Company Number: PHHY2014IT116306

PATIENT
  Age: 80 Year
  Sex: Male
  Weight: 72 kg

DRUGS (7)
  1. AVODART [Concomitant]
     Active Substance: DUTASTERIDE
     Dosage: 1 DF, DAILY
     Route: 048
     Dates: start: 1990
  2. SOLOSA [Concomitant]
     Active Substance: GLIMEPIRIDE
     Dosage: 2 MG, DAILY
     Route: 048
  3. ADENURIC [Concomitant]
     Active Substance: FEBUXOSTAT
     Dosage: 1 DF, DAILY
     Route: 048
     Dates: start: 1990
  4. COUMADIN [Concomitant]
     Active Substance: WARFARIN SODIUM
     Route: 048
     Dates: start: 20100101
  5. PROSCAR [Concomitant]
     Active Substance: FINASTERIDE
     Dosage: 5 MG, DAILY
     Route: 048
     Dates: start: 1990
  6. AMN107 [Suspect]
     Active Substance: NILOTINIB
     Indication: CHRONIC MYELOID LEUKAEMIA
     Dosage: 300 MG, QD
     Route: 048
     Dates: start: 20101213
  7. RAMIPRIL. [Concomitant]
     Active Substance: RAMIPRIL
     Dosage: 10 MG, DAILY
     Route: 048
     Dates: start: 19900101

REACTIONS (3)
  - Aphasia [Recovering/Resolving]
  - Dysarthria [Recovering/Resolving]
  - Hypoxic-ischaemic encephalopathy [Recovering/Resolving]

NARRATIVE: CASE EVENT DATE: 20140729
